FAERS Safety Report 8788086 (Version 1)
Quarter: 2012Q4

REPORT INFORMATION
  Report Type: 
  Country: US (occurrence: US)
  Receive Date: 20120914
  Receipt Date: 20120914
  Transmission Date: 20130627
  Serious: Yes (Hospitalization, Other)
  Sender: FDA-Public Use
  Company Number: US-ELI_LILLY_AND_COMPANY-US201209001850

PATIENT
  Age: 54 None
  Sex: Male
  Weight: 130.61 kg

DRUGS (9)
  1. CIALIS [Suspect]
     Indication: ERECTILE DYSFUNCTION
  2. VIAGRA [Concomitant]
     Indication: ERECTILE DYSFUNCTION
     Dosage: 100 mg, prn
     Route: 048
     Dates: start: 20100428
  3. METOPROLOL [Concomitant]
     Indication: HYPERTENSION
     Dosage: 20 mg, bid
  4. ZANTAC [Concomitant]
     Indication: GASTROOESOPHAGEAL REFLUX DISEASE
     Dosage: UNK
  5. PLAVIX [Concomitant]
     Indication: CARDIAC DISORDER
     Dosage: UNK
     Route: 048
  6. ASPIRIN [Concomitant]
     Dosage: 81 mg, qd
  7. CRESTOR [Concomitant]
     Indication: BLOOD CHOLESTEROL INCREASED
     Dosage: 10 mg, qd
     Route: 048
  8. MICARDIS [Concomitant]
     Indication: HYPERTENSION
     Dosage: 80 mg, qd
     Route: 048
  9. BYSTOLIC [Concomitant]
     Indication: HYPERTENSION
     Dosage: 10 mg, UNK

REACTIONS (9)
  - Cardiac disorder [Unknown]
  - Biliary tract infection [Unknown]
  - Bile duct stone [Not Recovered/Not Resolved]
  - Staphylococcal infection [Recovered/Resolved]
  - Vision blurred [Unknown]
  - Abdominal pain upper [Unknown]
  - Back pain [Unknown]
  - Drug ineffective [Not Recovered/Not Resolved]
  - Malaise [Recovered/Resolved]
